FAERS Safety Report 22996255 (Version 4)
Quarter: 2023Q4

REPORT INFORMATION
  Report Type: Spontaneous
  Country: US (occurrence: US)
  Receive Date: 20230927
  Receipt Date: 20231205
  Transmission Date: 20240110
  Serious: Yes (Other)
  Sender: FDA-Public Use
  Company Number: US-SA-SAC20230927000317

PATIENT
  Age: 75 Year
  Sex: Male

DRUGS (1)
  1. DUPIXENT [Suspect]
     Active Substance: DUPILUMAB
     Indication: Nasal polyps
     Dosage: 300 MG, QOW
     Route: 058
     Dates: start: 20230901, end: 2023

REACTIONS (4)
  - Coccidioidomycosis [Unknown]
  - Chills [Unknown]
  - Fatigue [Unknown]
  - Listless [Unknown]

NARRATIVE: CASE EVENT DATE: 20230909
